FAERS Safety Report 5608582-9 (Version None)
Quarter: 2008Q1

REPORT INFORMATION
  Report Type: 
  Country: None (occurrence: None)
  Receive Date: 20080130
  Receipt Date: 20080118
  Transmission Date: 20080703
  Serious: Yes (Other)
  Sender: FDA-Public Use
  Company Number: US-PFIZER INC-2008003690

PATIENT
  Sex: Female
  Weight: 81.6 kg

DRUGS (9)
  1. CHANTIX [Suspect]
     Indication: SMOKING CESSATION THERAPY
     Route: 048
     Dates: start: 20080101, end: 20080115
  2. SPIRONOLACTONE [Concomitant]
     Route: 048
  3. ACIPHEX [Concomitant]
     Route: 048
  4. LEVOTHYROXINE SODIUM [Concomitant]
     Route: 048
  5. ALL OTHER THERAPEUTIC PRODUCTS [Concomitant]
  6. POTASSIUM CHLORIDE [Concomitant]
     Route: 048
  7. BUSPIRONE HYDROCHLORIDE [Concomitant]
  8. AMITRIPTYLINE HCL [Concomitant]
  9. LAXATIVES [Concomitant]

REACTIONS (6)
  - ANXIETY [None]
  - CONSTIPATION [None]
  - FATIGUE [None]
  - INFLUENZA LIKE ILLNESS [None]
  - NAUSEA [None]
  - PAIN [None]
